FAERS Safety Report 16993095 (Version 2)
Quarter: 2024Q1

REPORT INFORMATION
  Report Type: Spontaneous
  Country: CA (occurrence: CA)
  Receive Date: 20191105
  Receipt Date: 20240130
  Transmission Date: 20240410
  Serious: Yes (Hospitalization, Other)
  Sender: FDA-Public Use
  Company Number: CA-PFIZER INC-2019473644

PATIENT
  Age: 42 Year
  Sex: Female

DRUGS (2)
  1. METHOTREXATE SODIUM [Suspect]
     Active Substance: METHOTREXATE SODIUM
     Dosage: UNK
     Route: 065
     Dates: start: 2010, end: 2011
  2. HUMIRA [Suspect]
     Active Substance: ADALIMUMAB
     Dosage: 40 MG (1 EVERY 2 WEEKS)
     Route: 058
     Dates: start: 2011, end: 201804

REACTIONS (14)
  - Mouth ulceration [Unknown]
  - Condition aggravated [Unknown]
  - Rash [Unknown]
  - Uveitis [Unknown]
  - Induration [Unknown]
  - Fatigue [Unknown]
  - Mononeuritis [Unknown]
  - Loss of personal independence in daily activities [Unknown]
  - Inflammation [Unknown]
  - Urticaria [Unknown]
  - Oral infection [Unknown]
  - Genital infection [Unknown]
  - Headache [Unknown]
  - Localised infection [Unknown]
